FAERS Safety Report 11743611 (Version 2)
Quarter: 2015Q4

REPORT INFORMATION
  Report Type: Spontaneous
  Country: US (occurrence: US)
  Receive Date: 20151116
  Receipt Date: 20151117
  Transmission Date: 20160304
  Serious: Yes (Other)
  Sender: FDA-Public Use
  Company Number: US-GLAXOSMITHKLINE-US2015GSK160168

PATIENT
  Sex: Female
  Weight: 69 kg

DRUGS (4)
  1. TYLENOL [Concomitant]
     Active Substance: ACETAMINOPHEN
  2. IMITREX [Suspect]
     Active Substance: SUMATRIPTAN\SUMATRIPTAN SUCCINATE
     Indication: MIGRAINE
  3. PAXIL [Concomitant]
     Active Substance: PAROXETINE HYDROCHLORIDE
  4. EXCEDRIN [Concomitant]
     Active Substance: ACETAMINOPHEN\ASPIRIN\CAFFEINE

REACTIONS (9)
  - Intentional product use issue [Unknown]
  - Drug ineffective [Unknown]
  - Vomiting [Unknown]
  - Coeliac disease [Unknown]
  - Inability to afford medication [Unknown]
  - Headache [Unknown]
  - Nausea [Unknown]
  - Condition aggravated [Unknown]
  - Adverse event [Unknown]
